FAERS Safety Report 6289405-4 (Version None)
Quarter: 2009Q3

REPORT INFORMATION
  Report Type: 
  Country: None (occurrence: None)
  Receive Date: 20090728
  Receipt Date: 20090728
  Transmission Date: 20100115
  Serious: Yes (Hospitalization)
  Sender: FDA-Public Use
  Company Number: None

PATIENT
  Age: 39 Year
  Sex: Female

DRUGS (1)
  1. VANCOMYCIN [Suspect]
     Dosage: 1500 MG ONCE DAILY IV
     Route: 042

REACTIONS (4)
  - BLISTER [None]
  - HYPOTENSION [None]
  - MALAISE [None]
  - RASH MACULO-PAPULAR [None]
